FAERS Safety Report 9881503 (Version 1)
Quarter: 2014Q1

REPORT INFORMATION
  Report Type: Report from Study
  Country: US (occurrence: US)
  Receive Date: 20140207
  Receipt Date: 20140207
  Transmission Date: 20141002
  Serious: Yes (Hospitalization, Other)
  Sender: FDA-Public Use
  Company Number: US-ABBVIE-14P-163-1196013-00

PATIENT
  Age: 81 Year
  Sex: Female
  Weight: 74.91 kg

DRUGS (7)
  1. HUMIRA [Suspect]
     Indication: PSORIASIS
     Dates: start: 2012
  2. LIPITOR [Concomitant]
     Indication: BLOOD CHOLESTEROL INCREASED
  3. AGGRENOX [Concomitant]
     Indication: ANTICOAGULANT THERAPY
  4. CELEXA [Concomitant]
     Indication: DEPRESSION
  5. TYLENOL [Concomitant]
     Indication: PAIN
  6. VITAMIN D [Concomitant]
     Indication: VITAMIN SUPPLEMENTATION
  7. FISH OIL [Concomitant]
     Indication: MINERAL SUPPLEMENTATION

REACTIONS (3)
  - Gait disturbance [Recovering/Resolving]
  - VIIth nerve paralysis [Unknown]
  - Cerebrovascular accident [Recovered/Resolved]
